FAERS Safety Report 18079485 (Version 1)
Quarter: 2020Q3

REPORT INFORMATION
  Report Type: Spontaneous
  Country: US (occurrence: US)
  Receive Date: 20200727
  Receipt Date: 20200727
  Transmission Date: 20201103
  Serious: No
  Sender: FDA-Public Use
  Company Number: None

PATIENT
  Age: 42 Year
  Sex: Female
  Weight: 67.5 kg

DRUGS (2)
  1. DEXTROAMPHET SACCHARAT, AMPHET ASPARTATE, DEXTROAMPHET SULFATE AND AMPHET SULFAT [Suspect]
     Active Substance: AMPHETAMINE ASPARTATE\AMPHETAMINE SULFATE\DEXTROAMPHETAMINE SACCHARATE\DEXTROAMPHETAMINE SULFATE
     Indication: ATTENTION DEFICIT HYPERACTIVITY DISORDER
     Route: 048
     Dates: start: 20191220, end: 20191223
  2. EPI PENS [Concomitant]

REACTIONS (8)
  - Nausea [None]
  - Pallor [None]
  - Tachycardia [None]
  - Headache [None]
  - Body temperature fluctuation [None]
  - Hyperhidrosis [None]
  - Abdominal pain upper [None]
  - Syncope [None]

NARRATIVE: CASE EVENT DATE: 20191220
